FAERS Safety Report 9355351 (Version 1)
Quarter: 2013Q2

REPORT INFORMATION
  Report Type: Spontaneous
  Country: US (occurrence: US)
  Receive Date: 20130619
  Receipt Date: 20130619
  Transmission Date: 20140414
  Serious: Yes (Hospitalization)
  Sender: FDA-Public Use
  Company Number: US-BAYER-2013-075191

PATIENT
  Age: 48 Year
  Sex: Female
  Weight: 79.37 kg

DRUGS (7)
  1. YAZ [Suspect]
  2. YASMIN [Suspect]
  3. OCELLA [Suspect]
  4. PREDNISONE [Concomitant]
     Dosage: 20 MG, UNK
  5. OXYCODONE/APAP [Concomitant]
     Dosage: 10-650 MF
  6. DICLOFENAC SODIUM [Concomitant]
     Dosage: 75 MG, UNK
  7. PENTASA [Concomitant]

REACTIONS (1)
  - Pulmonary embolism [Recovered/Resolved]
